FAERS Safety Report 9648692 (Version 1)
Quarter: 2013Q4

REPORT INFORMATION
  Report Type: Spontaneous
  Country: US (occurrence: US)
  Receive Date: 20131028
  Receipt Date: 20131028
  Transmission Date: 20140711
  Serious: No
  Sender: FDA-Public Use
  Company Number: US-MYLANLABS-2012S1025570

PATIENT
  Age: 22 Year
  Sex: Female
  Weight: 58.97 kg

DRUGS (2)
  1. RISPERIDONE [Suspect]
     Indication: PSYCHOMOTOR HYPERACTIVITY
     Route: 048
     Dates: start: 2003, end: 201210
  2. RISPERIDONE [Suspect]
     Indication: OFF LABEL USE
     Route: 048
     Dates: start: 2003, end: 201210

REACTIONS (2)
  - Breast discomfort [Not Recovered/Not Resolved]
  - Galactorrhoea [Not Recovered/Not Resolved]
